FAERS Safety Report 25338894 (Version 1)
Quarter: 2025Q2

REPORT INFORMATION
  Report Type: Spontaneous
  Country: US (occurrence: US)
  Receive Date: 20250520
  Receipt Date: 20250520
  Transmission Date: 20250717
  Serious: Yes (Hospitalization, Other)
  Sender: BRISTOL-MYERS SQUIBB COMPANY
  Company Number: US-BRISTOL-MYERS SQUIBB COMPANY-2025-072308

PATIENT
  Age: 71 Year
  Weight: 71.7 kg

DRUGS (2)
  1. ELIQUIS [Suspect]
     Active Substance: APIXABAN
     Indication: Product used for unknown indication
  2. INOTUZUMAB OZOGAMICIN [Concomitant]
     Active Substance: INOTUZUMAB OZOGAMICIN
     Indication: Acute lymphocytic leukaemia

REACTIONS (5)
  - Subdural haematoma [Recovering/Resolving]
  - Pneumocephalus [Recovering/Resolving]
  - Oral candidiasis [Recovering/Resolving]
  - Ageusia [Recovering/Resolving]
  - Neurological decompensation [Recovering/Resolving]

NARRATIVE: CASE EVENT DATE: 20250501
